FAERS Safety Report 21822094 (Version 2)
Quarter: 2023Q1

REPORT INFORMATION
  Report Type: Spontaneous
  Country: US (occurrence: None)
  Receive Date: 20230105
  Receipt Date: 20230223
  Transmission Date: 20230418
  Serious: No
  Sender: FDA-Public Use
  Company Number: 2023A001976

PATIENT
  Sex: Female

DRUGS (1)
  1. BYDUREON BCISE [Suspect]
     Active Substance: EXENATIDE
     Route: 058
     Dates: start: 2019

REACTIONS (10)
  - Memory impairment [Unknown]
  - Cognitive disorder [Unknown]
  - Tooth disorder [Unknown]
  - Injection site injury [Unknown]
  - Diabetes mellitus inadequate control [Unknown]
  - Injection site pain [Unknown]
  - Somnolence [Unknown]
  - Incorrect dose administered by device [Unknown]
  - Device leakage [Unknown]
  - Device delivery system issue [Unknown]
